FAERS Safety Report 16255332 (Version 1)
Quarter: 2019Q2

REPORT INFORMATION
  Report Type: Spontaneous
  Country: US (occurrence: US)
  Receive Date: 20190430
  Receipt Date: 20190430
  Transmission Date: 20190711
  Serious: No
  Sender: FDA-Public Use
  Company Number: US-DRREDDYS-USA/USA/19/0109777

PATIENT
  Sex: Female

DRUGS (1)
  1. IBUPROFEN 400,600,800 MG FILM COATED TABLETS [Suspect]
     Active Substance: IBUPROFEN
     Indication: PRODUCT USED FOR UNKNOWN INDICATION
     Route: 048

REACTIONS (2)
  - Heart rate increased [Unknown]
  - Feeling abnormal [Unknown]
